FAERS Safety Report 6644555-5 (Version None)
Quarter: 2010Q1

REPORT INFORMATION
  Report Type: 
  Country: None (occurrence: None)
  Receive Date: 20100317
  Receipt Date: 20100302
  Transmission Date: 20100710
  Serious: Yes (Hospitalization)
  Sender: FDA-Public Use
  Company Number: 2010000752

PATIENT
  Age: 64 Year
  Sex: Male

DRUGS (4)
  1. ERLOTINIB HYDROCHLORIDE [Suspect]
     Indication: NON-SMALL CELL LUNG CANCER
     Dosage: (2250 MG,QD),ORAL
     Route: 048
     Dates: start: 20100210, end: 20100210
  2. AMITRIPTYLINE HCL [Concomitant]
  3. OXYCONTIN (OXYCODONE HYDROCHLOIDE) [Concomitant]
  4. PREGANBALIN [Concomitant]

REACTIONS (5)
  - AMNESIA [None]
  - ATAXIA [None]
  - BLOOD BILIRUBIN INCREASED [None]
  - DYSKINESIA [None]
  - SPEECH DISORDER [None]
